FAERS Safety Report 7330124-0 (Version None)
Quarter: 2011Q1

REPORT INFORMATION
  Report Type: 
  Country: None (occurrence: None)
  Receive Date: 20110303
  Receipt Date: 20110208
  Transmission Date: 20110831
  Serious: Yes (Hospitalization)
  Sender: FDA-Public Use
  Company Number: US-BAYER-2010-004816

PATIENT
  Sex: Female
  Weight: 117.1 kg

DRUGS (3)
  1. UNCODEABLE ^UNCLASSIFIABLE^ [Concomitant]
     Dosage: UNK UNK, PRN
  2. YASMIN [Suspect]
     Indication: POLYCYSTIC OVARIES
  3. YASMIN [Suspect]
     Indication: MENSTRUAL DISORDER
     Dosage: UNK
     Dates: start: 20050701

REACTIONS (6)
  - CHOLECYSTITIS [None]
  - VOMITING [None]
  - ABDOMINAL PAIN [None]
  - GALLBLADDER CHOLESTEROLOSIS [None]
  - NAUSEA [None]
  - PAIN [None]
